FAERS Safety Report 8106824-1 (Version None)
Quarter: 2011Q4

REPORT INFORMATION
  Report Type: 
  Country: None (occurrence: None)
  Receive Date: 20111227
  Receipt Date: 20110916
  Transmission Date: 20120403
  Serious: Yes (Other)
  Sender: FDA-Public Use
  Company Number: PHHY201169053

PATIENT
  Age: 39 Year
  Sex: Female

DRUGS (11)
  1. GABAPENTIN [Concomitant]
  2. TOPROL-XL [Concomitant]
  3. SYMBICORT [Concomitant]
  4. VERAMYST (FLUTICASONE FUROATE) [Concomitant]
  5. LOSARTAN POTASSIUM [Concomitant]
  6. GILENYA [Suspect]
     Indication: MULTIPLE SCLEROSIS
     Dosage: 0.5 MG, DAILY, ORAL
     Route: 048
     Dates: start: 20110209, end: 20110711
  7. SINGULAIR [Concomitant]
  8. ASPIRIN [Concomitant]
  9. XOPENEX [Concomitant]
  10. SPIRIVA [Concomitant]
  11. MULTIPLE VITAMINS (ASCORBIC ACID, ERGOCALCIFEROL, FOLIC ACID, RETINOL, [Concomitant]

REACTIONS (6)
  - DYSPNOEA [None]
  - ANXIETY [None]
  - ALANINE AMINOTRANSFERASE INCREASED [None]
  - ASPARTATE AMINOTRANSFERASE INCREASED [None]
  - LIVER FUNCTION TEST ABNORMAL [None]
  - HEART RATE DECREASED [None]
